FAERS Safety Report 5676780-4 (Version None)
Quarter: 2008Q2

REPORT INFORMATION
  Report Type: 
  Country: None (occurrence: None)
  Receive Date: 20080311
  Receipt Date: 20080204
  Transmission Date: 20081010
  Serious: No
  Sender: FDA-Public Use
  Company Number: 002#2#2008-00021

PATIENT
  Age: 57 Year
  Sex: Male
  Weight: 90.7194 kg

DRUGS (5)
  1. NEUPRO [Suspect]
     Indication: PARKINSON'S DISEASE
     Dosage: 2MG/24H, 1 IN 1; 4 MG/24H, 1 IN 1 D; 6MG/24H, 1 IN 1D; 4 MG/24H, 1 IN 1 D, TRANDERMAL
     Route: 062
     Dates: start: 20071001, end: 20070101
  2. NEUPRO [Suspect]
     Indication: PARKINSON'S DISEASE
     Dosage: 2MG/24H, 1 IN 1; 4 MG/24H, 1 IN 1 D; 6MG/24H, 1 IN 1D; 4 MG/24H, 1 IN 1 D, TRANDERMAL
     Route: 062
     Dates: start: 20071001, end: 20071101
  3. NEUPRO [Suspect]
     Indication: PARKINSON'S DISEASE
     Dosage: 2MG/24H, 1 IN 1; 4 MG/24H, 1 IN 1 D; 6MG/24H, 1 IN 1D; 4 MG/24H, 1 IN 1 D, TRANDERMAL
     Route: 062
     Dates: start: 20071101, end: 20071201
  4. NEUPRO [Suspect]
     Indication: PARKINSON'S DISEASE
     Dosage: 2MG/24H, 1 IN 1; 4 MG/24H, 1 IN 1 D; 6MG/24H, 1 IN 1D; 4 MG/24H, 1 IN 1 D, TRANDERMAL
     Route: 062
     Dates: start: 20071201
  5. COENZYME Q10 [Concomitant]

REACTIONS (14)
  - APPLICATION SITE DERMATITIS [None]
  - APPLICATION SITE ERYTHEMA [None]
  - APPLICATION SITE RASH [None]
  - APPLICATION SITE REACTION [None]
  - BLOOD PRESSURE INCREASED [None]
  - DIZZINESS [None]
  - DRUG ADMINISTRATION ERROR [None]
  - DRUG INEFFECTIVE [None]
  - DRY SKIN [None]
  - FATIGUE [None]
  - HALLUCINATION [None]
  - NIGHTMARE [None]
  - PHARMACEUTICAL PRODUCT COMPLAINT [None]
  - SOMNOLENCE [None]
